FAERS Safety Report 15089598 (Version 1)
Quarter: 2018Q2

REPORT INFORMATION
  Report Type: Spontaneous
  Country: RU (occurrence: RU)
  Receive Date: 20180629
  Receipt Date: 20180629
  Transmission Date: 20180711
  Serious: Yes (Other)
  Sender: FDA-Public Use
  Company Number: RU-009507513-1806RUS011591

PATIENT
  Age: 31 Year
  Sex: Female

DRUGS (6)
  1. FLUIMUCIL [Concomitant]
     Active Substance: ACETYLCYSTEINE
  2. NASONEX [Suspect]
     Active Substance: MOMETASONE FUROATE
     Indication: LARYNGITIS
     Dosage: 400 MCG DAILY
     Route: 045
  3. EURESPAL [Concomitant]
     Active Substance: FENSPIRIDE HYDROCHLORIDE
  4. ISOFRA [Concomitant]
     Active Substance: FRAMYCETIN SULFATE
  5. AQUALOR [Concomitant]
  6. NASONEX [Suspect]
     Active Substance: MOMETASONE FUROATE
     Indication: RHINITIS ALLERGIC

REACTIONS (2)
  - Haemorrhage [Unknown]
  - Product use in unapproved indication [Unknown]
